APPROVED DRUG PRODUCT: VALSARTAN
Active Ingredient: VALSARTAN
Strength: 80MG
Dosage Form/Route: TABLET;ORAL
Application: A218169 | Product #002
Applicant: SOMERSET THERAPEUTICS LLC
Approved: Aug 5, 2024 | RLD: No | RS: No | Type: DISCN